FAERS Safety Report 10224805 (Version 2)
Quarter: 2014Q2

REPORT INFORMATION
  Report Type: Spontaneous
  Country: US (occurrence: US)
  Receive Date: 20140609
  Receipt Date: 20140618
  Transmission Date: 20141212
  Serious: Yes (Death, Hospitalization)
  Sender: FDA-Public Use
  Company Number: US-GLAXOSMITHKLINE-A1031475A

PATIENT
  Sex: Male

DRUGS (2)
  1. AVANDIA [Suspect]
     Indication: DIABETES MELLITUS
     Dosage: 4MG PER DAY
     Route: 048
     Dates: start: 20040315, end: 20070218
  2. AVANDAMET [Suspect]
     Indication: DIABETES MELLITUS
     Route: 048
     Dates: start: 20040929

REACTIONS (6)
  - Death [Fatal]
  - Cardiac failure congestive [Unknown]
  - Atrial fibrillation [Unknown]
  - Ischaemic cardiomyopathy [Unknown]
  - Atrial flutter [Unknown]
  - Coronary artery disease [Unknown]
